FAERS Safety Report 16711353 (Version 1)
Quarter: 2019Q3

REPORT INFORMATION
  Report Type: Report from Study
  Country: US (occurrence: US)
  Receive Date: 20190816
  Receipt Date: 20190816
  Transmission Date: 20191004
  Serious: Yes (Hospitalization)
  Sender: FDA-Public Use
  Company Number: US-BRISTOL-MYERS SQUIBB COMPANY-BMS-2019-079865

PATIENT
  Age: 67 Year
  Sex: Female

DRUGS (5)
  1. NIVOLUMAB [Suspect]
     Active Substance: NIVOLUMAB
     Indication: LUNG ADENOCARCINOMA STAGE IV
     Dosage: 240 MILLIGRAM
     Route: 042
     Dates: start: 20190422, end: 20190506
  2. GEMCITABINE. [Concomitant]
     Active Substance: GEMCITABINE
     Indication: LUNG ADENOCARCINOMA STAGE IV
     Route: 065
  3. CARBOPLATIN. [Concomitant]
     Active Substance: CARBOPLATIN
     Indication: LUNG ADENOCARCINOMA STAGE IV
     Dosage: UNK
     Route: 065
     Dates: end: 20190716
  4. AZACITIDINE. [Suspect]
     Active Substance: AZACITIDINE
     Indication: LUNG ADENOCARCINOMA STAGE IV
     Dosage: 76.5 MILLIGRAM
     Route: 058
     Dates: start: 20190422, end: 20190501
  5. ENTINOSTAT [Suspect]
     Active Substance: ENTINOSTAT
     Indication: LUNG ADENOCARCINOMA STAGE IV
     Dosage: 5 MILLIGRAM
     Route: 048
     Dates: start: 20190424, end: 20190501

REACTIONS (2)
  - Abdominal pain [Recovered/Resolved with Sequelae]
  - Back pain [Recovered/Resolved with Sequelae]

NARRATIVE: CASE EVENT DATE: 20190714
